FAERS Safety Report 10046924 (Version 2)
Quarter: 2014Q2

REPORT INFORMATION
  Report Type: Spontaneous
  Country: NL (occurrence: NL)
  Receive Date: 20140331
  Receipt Date: 20140627
  Transmission Date: 20141212
  Serious: Yes (Death, Other)
  Sender: FDA-Public Use
  Company Number: NL-ELI_LILLY_AND_COMPANY-NL201403008899

PATIENT
  Sex: 0

DRUGS (3)
  1. PROZAC [Suspect]
     Indication: DEPRESSIVE SYMPTOM
     Dosage: 10 MG, QD
     Route: 064
     Dates: start: 2011
  2. SEROXAT [Concomitant]
     Indication: PRODUCT USED FOR UNKNOWN INDICATION
     Dosage: 30 MG, QD
     Route: 064
  3. SEROXAT [Concomitant]
     Dosage: 40 MG, QD
     Route: 064

REACTIONS (3)
  - Stillbirth [Fatal]
  - Foetal arrhythmia [Recovered/Resolved]
  - Foetal exposure during pregnancy [Unknown]
